FAERS Safety Report 14006060 (Version 2)
Quarter: 2018Q2

REPORT INFORMATION
  Report Type: Spontaneous
  Country: IT (occurrence: IT)
  Receive Date: 20170924
  Receipt Date: 20180601
  Transmission Date: 20180711
  Serious: Yes (Hospitalization)
  Sender: FDA-Public Use
  Company Number: PHHY2017IT137728

PATIENT
  Age: 73 Year
  Sex: Female
  Weight: 55 kg

DRUGS (4)
  1. COTAREG [Suspect]
     Active Substance: HYDROCHLOROTHIAZIDE\VALSARTAN
     Indication: INTENTIONAL SELF-INJURY
  2. IPERTEN [Suspect]
     Active Substance: MANIDIPINE
     Indication: INTENTIONAL SELF-INJURY
  3. COTAREG [Suspect]
     Active Substance: HYDROCHLOROTHIAZIDE\VALSARTAN
     Indication: DRUG ABUSE
     Dosage: 56 DF, UNK (TOTAL)
     Route: 048
     Dates: start: 20170620, end: 20170620
  4. IPERTEN [Suspect]
     Active Substance: MANIDIPINE
     Indication: DRUG ABUSE
     Dosage: 20 DF, TOTAL
     Route: 048
     Dates: start: 20170620, end: 20170620

REACTIONS (6)
  - Hypotension [Recovered/Resolved]
  - Hyponatraemia [Recovered/Resolved]
  - Drug abuse [Recovered/Resolved]
  - Electrocardiogram QT prolonged [Recovered/Resolved]
  - Bradycardia [Recovered/Resolved]
  - Hypokalaemia [Recovered/Resolved]

NARRATIVE: CASE EVENT DATE: 20170621
